FAERS Safety Report 7404995-3 (Version None)
Quarter: 2011Q2

REPORT INFORMATION
  Report Type: 
  Country: None (occurrence: None)
  Receive Date: 20110411
  Receipt Date: 20110405
  Transmission Date: 20111010
  Serious: Yes (Other)
  Sender: FDA-Public Use
  Company Number: US-AMGEN-USASP2011018085

PATIENT

DRUGS (2)
  1. ARANESP [Suspect]
     Indication: RENAL FAILURE CHRONIC
     Dates: start: 20070101
  2. ARANESP [Suspect]
     Dosage: 60 A?G, Q2WK

REACTIONS (2)
  - LUNG NEOPLASM MALIGNANT [None]
  - IRON DEFICIENCY [None]
